FAERS Safety Report 4292529-4 (Version None)
Quarter: 2004Q1

REPORT INFORMATION
  Report Type: 
  Country: None (occurrence: None)
  Receive Date: 20040211
  Receipt Date: 20040211
  Transmission Date: 20041129
  Serious: Yes (Hospitalization)
  Sender: FDA-Public Use
  Company Number: None

PATIENT
  Age: 51 Year
  Sex: Female
  Weight: 98.8842 kg

DRUGS (2)
  1. ZYVOX [Suspect]
     Indication: STAPHYLOCOCCAL SEPSIS
     Dosage: 600 MG EVERY 12 H IV
     Route: 042
     Dates: start: 20040207, end: 20040207
  2. ZYVOX [Suspect]
     Indication: WOUND SEPSIS
     Dosage: 600 MG EVERY 12 H IV
     Route: 042
     Dates: start: 20040207, end: 20040207

REACTIONS (3)
  - ANAPHYLACTIC REACTION [None]
  - SENSORY DISTURBANCE [None]
  - TONGUE DISORDER [None]
